FAERS Safety Report 24786617 (Version 3)
Quarter: 2025Q2

REPORT INFORMATION
  Report Type: Report from Study
  Country: US (occurrence: US)
  Receive Date: 20241230
  Receipt Date: 20250520
  Transmission Date: 20250717
  Serious: Yes (Other)
  Sender: ABBVIE
  Company Number: US-ABBVIE-6065601

PATIENT
  Age: 76 Year
  Sex: Female

DRUGS (1)
  1. SKYRIZI [Suspect]
     Active Substance: RISANKIZUMAB-RZAA
     Indication: Psoriasis
     Route: 058
     Dates: start: 20200721

REACTIONS (5)
  - Spinal operation [Recovering/Resolving]
  - Peripheral swelling [Recovering/Resolving]
  - COVID-19 [Recovering/Resolving]
  - Cardiac disorder [Unknown]
  - Arthropathy [Unknown]

NARRATIVE: CASE EVENT DATE: 20241107
